FAERS Safety Report 8078355-9 (Version None)
Quarter: 2012Q1

REPORT INFORMATION
  Report Type: 
  Country: None (occurrence: None)
  Receive Date: 20120123
  Receipt Date: 20111208
  Transmission Date: 20120608
  Serious: Yes (Hospitalization)
  Sender: FDA-Public Use
  Company Number: US-2011-3438

PATIENT
  Age: 57 Year
  Sex: Male

DRUGS (15)
  1. DIOVAN [Concomitant]
  2. ISOPROTERENOL HCL [Concomitant]
  3. RANITIDINE [Concomitant]
  4. ONDANSETRON HCL [Concomitant]
  5. CISPLATIN [Suspect]
     Indication: LUNG CANCER METASTATIC
     Dosage: 156 MG IV
     Route: 042
     Dates: start: 20110629
  6. BENZONATATE [Concomitant]
  7. TUSSI-ORGANIDIN [Concomitant]
  8. CETUXIMAB [Suspect]
     Indication: LUNG CANCER METASTATIC
     Dosage: 780 MG IV
     Route: 042
     Dates: start: 20110629
  9. PHENERGAN EXPECTORANT W/ CODEINE [Concomitant]
  10. ALBUTEROL [Concomitant]
  11. DECADRON [Concomitant]
  12. TESSALON [Concomitant]
  13. LEVAQUIN [Concomitant]
  14. VINORELBINE [Suspect]
     Indication: LUNG CANCER METASTATIC
     Dosage: 49 MG IV
     Route: 042
     Dates: start: 20110629
  15. SOLU-MEDROL [Concomitant]

REACTIONS (6)
  - LUNG NEOPLASM MALIGNANT [None]
  - PNEUMONIA [None]
  - NEOPLASM PROGRESSION [None]
  - PNEUMONITIS [None]
  - RESPIRATORY DISTRESS [None]
  - LEUKOCYTOSIS [None]
